FAERS Safety Report 13483630 (Version 1)
Quarter: 2017Q2

REPORT INFORMATION
  Report Type: Spontaneous
  Country: US (occurrence: US)
  Receive Date: 20170426
  Receipt Date: 20170426
  Transmission Date: 20170830
  Serious: No
  Sender: FDA-Public Use
  Company Number: US-B.I. PHARMACEUTICALS,INC./RIDGEFIELD-2017-BI-023016

PATIENT
  Sex: Male

DRUGS (1)
  1. COMBIVENT [Suspect]
     Active Substance: ALBUTEROL SULFATE\IPRATROPIUM BROMIDE
     Indication: DYSPNOEA
     Dosage: ONE PUFF EVERY FOUR TO SIX HOURS AS NEEDED;  FORM STRENGTH: 20 MCG / 100 MCG; FORMULATION: INHALATIO
     Route: 055

REACTIONS (1)
  - Incorrect dosage administered [Unknown]
